FAERS Safety Report 25283028 (Version 9)
Quarter: 2025Q3

REPORT INFORMATION
  Report Type: Spontaneous
  Country: US (occurrence: US)
  Receive Date: 20250508
  Receipt Date: 20250721
  Transmission Date: 20251020
  Serious: Yes (Other)
  Sender: PFIZER
  Company Number: US-PFIZER INC-202500093284

PATIENT
  Age: 32 Year
  Sex: Male
  Weight: 95.238 kg

DRUGS (4)
  1. GENOTROPIN [Suspect]
     Active Substance: SOMATROPIN
     Indication: Growth hormone deficiency
     Dosage: 0.3 MG, DAILY
     Dates: start: 2025
  2. GENOTROPIN [Suspect]
     Active Substance: SOMATROPIN
     Indication: Hypothyroidism
  3. SYNTHROID [Concomitant]
     Active Substance: LEVOTHYROXINE SODIUM
     Indication: Hypothyroidism
  4. VENLAFAXINE [Concomitant]
     Active Substance: VENLAFAXINE HYDROCHLORIDE
     Indication: Anxiety
     Dosage: UNK, 1X/DAY

REACTIONS (5)
  - Asthenia [Unknown]
  - Dizziness [Unknown]
  - Disease recurrence [Unknown]
  - Drug dose omission by device [Unknown]
  - Device leakage [Unknown]

NARRATIVE: CASE EVENT DATE: 20250101
